FAERS Safety Report 13531946 (Version 1)
Quarter: 2017Q2

REPORT INFORMATION
  Report Type: Spontaneous
  Country: US (occurrence: US)
  Receive Date: 20170510
  Receipt Date: 20170510
  Transmission Date: 20170830
  Serious: Yes (Hospitalization)
  Sender: FDA-Public Use
  Company Number: US-TEVA-744566ACC

PATIENT
  Sex: Male

DRUGS (2)
  1. LIDOCAINE. [Suspect]
     Active Substance: LIDOCAINE
     Dates: start: 2016
  2. LIDOCAINE. [Suspect]
     Active Substance: LIDOCAINE
     Indication: NEUROPATHY PERIPHERAL
     Dosage: FORM OF ADMINISTRATION: PATCH
     Route: 061

REACTIONS (12)
  - Product use issue [Unknown]
  - Product adhesion issue [Unknown]
  - Muscle atrophy [Unknown]
  - Vascular graft [Unknown]
  - Neuralgia [Not Recovered/Not Resolved]
  - Restless legs syndrome [Unknown]
  - Muscular weakness [Unknown]
  - Hernia [Unknown]
  - Loss of consciousness [Unknown]
  - Drug ineffective [Unknown]
  - Incorrect drug administration duration [Unknown]
  - Nerve injury [Not Recovered/Not Resolved]

NARRATIVE: CASE EVENT DATE: 20170126
